FAERS Safety Report 9386190 (Version 2)
Quarter: 2013Q3

REPORT INFORMATION
  Report Type: Report from Study
  Country: GB (occurrence: GB)
  Receive Date: 20130707
  Receipt Date: 20130821
  Transmission Date: 20140515
  Serious: Yes (Death)
  Sender: FDA-Public Use
  Company Number: GB-ROCHE-1245558

PATIENT
  Sex: Female

DRUGS (3)
  1. RITUXIMAB [Suspect]
     Indication: RHEUMATOID ARTHRITIS
     Dosage: MOST RECENT DOSE PRIOR TO SERIOUS ADVERSE EVENT ON 08/JUN/2012
     Route: 065
     Dates: start: 20101018
  2. METHOTREXATE [Concomitant]
  3. ARA-C [Concomitant]

REACTIONS (1)
  - Central nervous system lymphoma [Fatal]
